FAERS Safety Report 10599997 (Version 1)
Quarter: 2014Q4

REPORT INFORMATION
  Report Type: Spontaneous
  Country: FR (occurrence: FR)
  Receive Date: 20141121
  Receipt Date: 20141121
  Transmission Date: 20150529
  Serious: Yes (Hospitalization, Other)
  Sender: FDA-Public Use
  Company Number: FR-ASTRAZENECA-2014SE86983

PATIENT
  Age: 81 Year
  Sex: Male

DRUGS (19)
  1. DUROGESIC [Concomitant]
     Active Substance: FENTANYL
  2. VENTOLINE [Concomitant]
     Active Substance: ALBUTEROL
  3. SERETIDE [Concomitant]
     Active Substance: FLUTICASONE FUROATE\SALMETEROL XINAFOATE
  4. ROCEPHINE [Suspect]
     Active Substance: CEFTRIAXONE SODIUM
     Route: 065
     Dates: start: 20141013, end: 20141022
  5. TIORFAN [Concomitant]
     Active Substance: RACECADOTRIL
  6. IMOVANE [Concomitant]
     Active Substance: ZOPICLONE
  7. CHIBRO-PROSCAR [Concomitant]
     Active Substance: FINASTERIDE
  8. DIFFU K [Concomitant]
     Active Substance: POTASSIUM CHLORIDE
     Dates: start: 20141013
  9. INEXIUM [Suspect]
     Active Substance: ESOMEPRAZOLE
     Route: 048
     Dates: start: 20141010
  10. CACIT D3 [Concomitant]
     Active Substance: CALCIUM\CHOLECALCIFEROL
     Dates: start: 20141013
  11. ZYLORIC [Suspect]
     Active Substance: ALLOPURINOL
     Route: 048
  12. ZOCOR [Concomitant]
     Active Substance: SIMVASTATIN
  13. AERIUS [Concomitant]
     Active Substance: DESLORATADINE
  14. BIPRETERAX [Suspect]
     Active Substance: INDAPAMIDE\PERINDOPRIL
     Route: 048
  15. JOSIR [Concomitant]
     Active Substance: TAMSULOSIN
  16. OGAST [Concomitant]
     Active Substance: LANSOPRAZOLE
     Dates: end: 201410
  17. CORTANCYL [Concomitant]
     Active Substance: PREDNISONE
     Dates: start: 20141013
  18. IMODIUM [Concomitant]
     Active Substance: LOPERAMIDE HYDROCHLORIDE
     Dates: start: 20141023, end: 20141025
  19. ZYMAD [Concomitant]
     Active Substance: CHOLECALCIFEROL
     Dates: end: 20141013

REACTIONS (5)
  - Renal failure [Recovered/Resolved]
  - Hypoalbuminaemia [Recovered/Resolved]
  - Agranulocytosis [Unknown]
  - Anaemia [Recovered/Resolved]
  - Neutropenia [Unknown]

NARRATIVE: CASE EVENT DATE: 20141027
